FAERS Safety Report 16643592 (Version 1)
Quarter: 2019Q3

REPORT INFORMATION
  Report Type: Spontaneous
  Country: US (occurrence: US)
  Receive Date: 20190729
  Receipt Date: 20190729
  Transmission Date: 20191004
  Serious: No
  Sender: FDA-Public Use
  Company Number: US-PRINSTON PHARMACEUTICAL INC.-2019PRN00223

PATIENT
  Sex: Male
  Weight: 74.83 kg

DRUGS (14)
  1. LISINOPRIL. [Suspect]
     Active Substance: LISINOPRIL
     Dosage: 10 MG, 2 X/DAY
     Route: 048
     Dates: start: 201901, end: 2019
  2. BYSTOLIC [Suspect]
     Active Substance: NEBIVOLOL HYDROCHLORIDE
     Dosage: 10 MG, 3X/DAY
     Dates: start: 2018, end: 2018
  3. UNSPECIFIED VITAMINS [Concomitant]
     Active Substance: VITAMINS
  4. LEXAPRO [Concomitant]
     Active Substance: ESCITALOPRAM OXALATE
     Indication: DEPRESSION
  5. TRAZODONE [Concomitant]
     Active Substance: TRAZODONE HYDROCHLORIDE
     Indication: SLEEP DISORDER
     Dosage: 400 MG, 1X/DAY AT BEDTIME
  6. LISINOPRIL. [Suspect]
     Active Substance: LISINOPRIL
     Dosage: 10 MG, 3X/DAY AT 6 A.M., 12 P.M., AND 6 P.M.
     Route: 048
     Dates: start: 2019
  7. BYSTOLIC [Suspect]
     Active Substance: NEBIVOLOL HYDROCHLORIDE
     Indication: HYPERTENSION
     Dosage: 5 MG, 2X/DAY
     Dates: start: 2018, end: 2018
  8. ZYPREXA [Concomitant]
     Active Substance: OLANZAPINE
     Dosage: 20 MG, 1X/DAY
  9. LEVOTHYROXINE SODIUM. [Concomitant]
     Active Substance: LEVOTHYROXINE SODIUM
     Indication: THYROID DISORDER
     Dosage: 175 ?G, 1X/DAY
  10. LIOTHYRONINE SODIUM. [Concomitant]
     Active Substance: LIOTHYRONINE SODIUM
     Indication: THYROID DISORDER
     Dosage: 75 ?G, 1X/DAY
  11. CLONAZEPAM. [Concomitant]
     Active Substance: CLONAZEPAM
     Indication: ANXIETY
     Dosage: 4 MG, 1X/DAY
  12. LISINOPRIL. [Suspect]
     Active Substance: LISINOPRIL
     Indication: HYPERTENSION
     Dosage: 10 MG, 2X/DAY
     Route: 048
     Dates: end: 2018
  13. BYSTOLIC [Suspect]
     Active Substance: NEBIVOLOL HYDROCHLORIDE
     Dosage: 10 MG, 3X/DAY AT 6 A.M., 12 P.M., AND 6 P.M.
     Dates: start: 201811
  14. UNSPECIFIED MINERALS [Concomitant]

REACTIONS (6)
  - Blood pressure increased [Unknown]
  - Increased appetite [Recovered/Resolved]
  - Dizziness [Recovered/Resolved]
  - Hypotension [Recovered/Resolved]
  - Visual impairment [Recovered/Resolved]
  - Cough [Recovered/Resolved]

NARRATIVE: CASE EVENT DATE: 2018
